FAERS Safety Report 9471829 (Version 1)
Quarter: 2013Q3

REPORT INFORMATION
  Report Type: Spontaneous
  Country: US (occurrence: None)
  Receive Date: 20130819
  Receipt Date: 20130819
  Transmission Date: 20140515
  Serious: Yes (Hospitalization, Other)
  Sender: FDA-Public Use
  Company Number: DAV-AE-DOX-13-01

PATIENT
  Age: 89 Year
  Sex: Female

DRUGS (9)
  1. DOXAZOSIN [Suspect]
     Indication: HYPERTENSION
  2. METOPROLOL SUCCINATE [Concomitant]
  3. AMLODIPINE [Concomitant]
  4. ATORVASTATIN [Concomitant]
  5. FOSINOPRIL [Concomitant]
  6. GLIPIZIDE [Concomitant]
  7. DOXAZOSIN [Concomitant]
  8. SPIRONOLACTONE [Concomitant]
  9. HYDROCHLORTHIAZIDE (HCTZ)-OLMESARTAN [Concomitant]

REACTIONS (3)
  - Hyperkalaemia [None]
  - Orthostatic hypotension [None]
  - Renal failure [None]
